FAERS Safety Report 7963536-2 (Version None)
Quarter: 2011Q4

REPORT INFORMATION
  Report Type: 
  Country: None (occurrence: None)
  Receive Date: 20111208
  Receipt Date: 20111109
  Transmission Date: 20120403
  Serious: No
  Sender: FDA-Public Use
  Company Number: US-BAYER-2011-109788

PATIENT
  Age: 89 Year
  Sex: Female
  Weight: 58.503 kg

DRUGS (3)
  1. ASPIRIN [Interacting]
  2. BISOPROLOL FUMARATE [Concomitant]
  3. ALEVE (CAPLET) [Suspect]
     Dosage: 2 DF, QD
     Route: 048
     Dates: start: 20111107

REACTIONS (1)
  - NO ADVERSE EVENT [None]
